FAERS Safety Report 7051544-8 (Version None)
Quarter: 2010Q4

REPORT INFORMATION
  Report Type: 
  Country: None (occurrence: None)
  Receive Date: 20101019
  Receipt Date: 20101008
  Transmission Date: 20110411
  Serious: Yes (Hospitalization)
  Sender: FDA-Public Use
  Company Number: DE-SANOFI-AVENTIS-2010SA062071

PATIENT
  Age: 79 Year
  Sex: Male

DRUGS (7)
  1. LEUPROLIDE ACETATE [Suspect]
     Indication: PROSTATE CANCER
     Route: 058
     Dates: start: 20070827, end: 20100826
  2. CASODEX [Suspect]
     Indication: PROSTATE CANCER
     Route: 048
     Dates: start: 20070827, end: 20081219
  3. LISIHEXAL [Concomitant]
     Indication: HYPERTENSION
     Route: 048
     Dates: start: 19950501, end: 20100503
  4. ACETYLSALICYLIC ACID SRT [Concomitant]
     Route: 048
     Dates: start: 19950501
  5. PLAVIX [Concomitant]
     Route: 048
     Dates: start: 19950501, end: 20100503
  6. AMLODIPINE [Concomitant]
     Indication: ARRHYTHMIA
     Route: 048
     Dates: start: 19950501, end: 20100503
  7. AMLODIPINE/VALSARTAN [Concomitant]
     Indication: HYPERTENSION
     Route: 048
     Dates: start: 20100504

REACTIONS (1)
  - CEREBROVASCULAR ACCIDENT [None]
